FAERS Safety Report 5608298-9 (Version None)
Quarter: 2008Q1

REPORT INFORMATION
  Report Type: 
  Country: None (occurrence: None)
  Receive Date: 20080130
  Receipt Date: 20080122
  Transmission Date: 20080703
  Serious: Yes (Hospitalization)
  Sender: FDA-Public Use
  Company Number: FR-ABBOTT-07P-056-0431620-00

PATIENT
  Sex: Male

DRUGS (7)
  1. SEVORANE LIQUID FOR INHALATION [Suspect]
     Indication: GENERAL ANAESTHESIA
     Route: 055
     Dates: start: 20070416, end: 20070416
  2. PROPOFOL [Suspect]
     Indication: GENERAL ANAESTHESIA
     Route: 042
     Dates: start: 20070416, end: 20070416
  3. REMIFENTANIL [Concomitant]
     Indication: GENERAL ANAESTHESIA
     Route: 042
  4. TRAMADOL HCL [Concomitant]
     Indication: PROCEDURAL PAIN
     Route: 048
     Dates: start: 20070416, end: 20070416
  5. PARACETAMOL [Concomitant]
     Indication: PROCEDURAL PAIN
     Route: 042
     Dates: start: 20070416
  6. KETOPROFEN [Concomitant]
     Indication: EYE DISORDER
     Route: 048
     Dates: start: 20070416, end: 20070416
  7. KETOPROFEN [Concomitant]
     Indication: SURGERY

REACTIONS (7)
  - DERMATITIS BULLOUS [None]
  - INFLAMMATION [None]
  - LYMPHADENOPATHY [None]
  - PYREXIA [None]
  - RASH PAPULAR [None]
  - RASH PUSTULAR [None]
  - SKIN DISORDER [None]
